FAERS Safety Report 23178377 (Version 1)
Quarter: 2023Q4

REPORT INFORMATION
  Report Type: Spontaneous
  Country: CH (occurrence: None)
  Receive Date: 20231113
  Receipt Date: 20231113
  Transmission Date: 20240110
  Serious: Yes (Hospitalization)
  Sender: FDA-Public Use
  Company Number: 2023A257867

PATIENT
  Age: 46 Year
  Sex: Female

DRUGS (10)
  1. QUETIAPINE [Suspect]
     Active Substance: QUETIAPINE
     Indication: Major depression
  2. ZOLPIDEM [Suspect]
     Active Substance: ZOLPIDEM TARTRATE
     Indication: Major depression
  3. GILENYA [Concomitant]
     Active Substance: FINGOLIMOD HYDROCHLORIDE
     Indication: Major depression
     Dosage: CHRONIC THERAPY
     Dates: start: 2012
  4. ASPIRIN [Concomitant]
     Active Substance: ASPIRIN
     Dosage: CHRONIC THERAPY
  5. CLOTHIAPINE [Concomitant]
     Active Substance: CLOTHIAPINE
     Dosage: CHRONIC THERAPY
  6. NEBIVOLOL MEPHA [Concomitant]
     Indication: Schizoaffective disorder
     Dosage: CHRONIC THERAPY
  7. RISPERIDONE [Concomitant]
     Active Substance: RISPERIDONE
     Indication: Schizoaffective disorder
     Dosage: CHRONIC THERAPY
  8. SURMONTIL [Concomitant]
     Active Substance: TRIMIPRAMINE MALEATE
     Indication: Depression
     Dosage: CHRONIC THERAPY
  9. VENLAFAXINE HYDROCHLORIDE [Concomitant]
     Active Substance: VENLAFAXINE HYDROCHLORIDE
     Indication: Depression
     Dosage: CHRONIC THERAPY
  10. XANAX [Concomitant]
     Active Substance: ALPRAZOLAM
     Indication: Depression
     Dosage: CHRONIC THERAPY,

REACTIONS (4)
  - Intentional overdose [Recovered/Resolved]
  - Coma [Recovered/Resolved]
  - Toxicity to various agents [Recovered/Resolved]
  - Obstructive airways disorder [Recovered/Resolved]
